FAERS Safety Report 22144953 (Version 1)
Quarter: 2023Q1

REPORT INFORMATION
  Report Type: Spontaneous
  Country: ES (occurrence: ES)
  Receive Date: 20230328
  Receipt Date: 20230328
  Transmission Date: 20230418
  Serious: Yes (Hospitalization)
  Sender: FDA-Public Use
  Company Number: None

PATIENT
  Age: 71 Year
  Sex: Male

DRUGS (6)
  1. EPLERENONE [Suspect]
     Active Substance: EPLERENONE
     Indication: Atrial flutter
     Dosage: 25 MG, Q24H
     Route: 048
     Dates: start: 201608, end: 20190102
  2. AMIODARONE HYDROCHLORIDE [Suspect]
     Active Substance: AMIODARONE HYDROCHLORIDE
     Indication: Atrial flutter
     Dosage: 200 MG, Q24H (30 COMPRIMDOS)
     Route: 048
     Dates: start: 201705, end: 20181220
  3. PANTOPRAZOLE SODIUM [Concomitant]
     Active Substance: PANTOPRAZOLE SODIUM
     Indication: Atrial flutter
     Dosage: 20 MG, Q24H (28 COMPRIMIDOS)
     Route: 048
     Dates: start: 20160328
  4. AMIODARONE HYDROCHLORIDE [Concomitant]
     Active Substance: AMIODARONE HYDROCHLORIDE
     Indication: Atrial flutter
     Dosage: 200 MG, Q8H (30 COMPRIMIDOS)
     Route: 048
     Dates: start: 20161002, end: 201705
  5. BISOPROLOL [Concomitant]
     Active Substance: BISOPROLOL
     Indication: Atrial flutter
     Dosage: 5 MG, Q12H (30 COMPRIMIDOS)
     Route: 048
     Dates: start: 20160207
  6. XARELTO [Concomitant]
     Active Substance: RIVAROXABAN
     Indication: Atrial flutter
     Dosage: 20 MG, Q24H (OMPRIMIDOS RECUBIERTOS CON PELICULA (28 COMPRIMIDOS), 28 COMPRIMIDOS)
     Route: 048
     Dates: start: 201702

REACTIONS (1)
  - Hyperthyroidism [Recovered/Resolved with Sequelae]

NARRATIVE: CASE EVENT DATE: 20190103
